FAERS Safety Report 8161596-X (Version None)
Quarter: 2012Q1

REPORT INFORMATION
  Report Type: 
  Country: None (occurrence: None)
  Receive Date: 20120224
  Receipt Date: 20120216
  Transmission Date: 20120608
  Serious: Yes (Hospitalization)
  Sender: FDA-Public Use
  Company Number: US-BAYER-2010-008419

PATIENT
  Age: 34 Year
  Sex: Female
  Weight: 49.887 kg

DRUGS (11)
  1. YAZ [Suspect]
     Indication: PREMENSTRUAL SYNDROME
     Dosage: UNK
     Dates: start: 20070701, end: 20100401
  2. ZYRTEC [Concomitant]
  3. PROAIR HFA [Concomitant]
     Dosage: UNK UNK, PRN
     Route: 048
  4. ACETAMINOPHEN [Concomitant]
     Indication: PAIN
     Dosage: UNK UNK, Q4HR
     Route: 048
  5. ASMANEX TWISTHALER [Concomitant]
     Dosage: 2 PUFF(S), QD
     Route: 048
  6. CLARITIN [Concomitant]
     Dosage: 1 DF, QD
     Route: 048
  7. VALTREX [Concomitant]
  8. PROVERA [Concomitant]
  9. ALLERGENS NOS [Concomitant]
     Indication: HYPERSENSITIVITY
  10. YAZ [Suspect]
     Indication: CONTRACEPTION
     Dosage: UNK
     Dates: start: 20071001, end: 20100101
  11. IBUPROFEN [Concomitant]
     Indication: PAIN
     Dosage: UNK UNK, Q4HR
     Route: 048

REACTIONS (2)
  - ABDOMINAL PAIN UPPER [None]
  - CHOLECYSTITIS [None]
